FAERS Safety Report 10819867 (Version 1)
Quarter: 2015Q1

REPORT INFORMATION
  Report Type: Report from Study
  Country: US (occurrence: US)
  Receive Date: 20150218
  Receipt Date: 20150218
  Transmission Date: 20150721
  Serious: No
  Sender: FDA-Public Use
  Company Number: US-ABBVIE-14K-163-1295567-00

PATIENT
  Age: 34 Year
  Sex: Female

DRUGS (3)
  1. HUMIRA [Suspect]
     Active Substance: ADALIMUMAB
     Indication: CROHN^S DISEASE
     Dosage: FOUR- 40 MG INJECTION
     Route: 065
     Dates: start: 20141008, end: 20141008
  2. HUMIRA [Suspect]
     Active Substance: ADALIMUMAB
     Route: 065
     Dates: start: 2014
  3. PAREGORIC [Concomitant]
     Active Substance: MORPHINE
     Indication: PRODUCT USED FOR UNKNOWN INDICATION

REACTIONS (10)
  - Urticaria [Unknown]
  - Rash pruritic [Not Recovered/Not Resolved]
  - Injection site urticaria [Unknown]
  - Pruritus [Unknown]
  - Rash papular [Not Recovered/Not Resolved]
  - Wrong technique in drug usage process [Unknown]
  - Rash [Not Recovered/Not Resolved]
  - Injection site pain [Not Recovered/Not Resolved]
  - Incorrect dose administered [Unknown]
  - Injection site pruritus [Unknown]

NARRATIVE: CASE EVENT DATE: 20141008
